FAERS Safety Report 8811114 (Version 1)
Quarter: 2012Q4

REPORT INFORMATION
  Report Type: Spontaneous
  Country: US (occurrence: None)
  Receive Date: 20120925
  Receipt Date: 20120925
  Transmission Date: 20130627
  Serious: Yes (Hospitalization)
  Sender: FDA-Public Use
  Company Number: None

PATIENT
  Sex: Female
  Weight: 68.04 kg

DRUGS (1)
  1. MIRENA [Suspect]
     Dosage: Dec 22, 2011 - March 25, 2011

REACTIONS (4)
  - Menorrhagia [None]
  - Abasia [None]
  - Metrorrhagia [None]
  - Dysstasia [None]
